FAERS Safety Report 8274041-0 (Version None)
Quarter: 2012Q2

REPORT INFORMATION
  Report Type: 
  Country: None (occurrence: None)
  Receive Date: 20120409
  Receipt Date: 20120328
  Transmission Date: 20120825
  Serious: Yes (Hospitalization)
  Sender: FDA-Public Use
  Company Number: JPI-P-020487

PATIENT
  Age: 35 Year
  Sex: Female

DRUGS (3)
  1. TRAMADOL HCL [Concomitant]
  2. XYREM [Suspect]
     Indication: CATAPLEXY
     Dosage: 4.5 GM (2.25 GM, 2 IN 1 D), ORAL    9 GM (4.5 GM, 2 IN 1 D), ORAL
     Route: 048
     Dates: start: 20111025
  3. XYREM [Suspect]
     Indication: CATAPLEXY
     Dosage: 4.5 GM (2.25 GM, 2 IN 1 D), ORAL    9 GM (4.5 GM, 2 IN 1 D), ORAL
     Route: 048
     Dates: start: 20110107

REACTIONS (15)
  - HYPOAESTHESIA [None]
  - FALL [None]
  - NERVE COMPRESSION [None]
  - NECK PAIN [None]
  - BACK PAIN [None]
  - ARTHRALGIA [None]
  - EAR INFECTION [None]
  - PAIN IN EXTREMITY [None]
  - CHEST PAIN [None]
  - NEPHROLITHIASIS [None]
  - MUSCLE SPASMS [None]
  - FLUID RETENTION [None]
  - MUSCLE STRAIN [None]
  - BREAST PAIN [None]
  - ABDOMINAL PAIN [None]
